FAERS Safety Report 5748518-3 (Version None)
Quarter: 2008Q2

REPORT INFORMATION
  Report Type: 
  Country: None (occurrence: None)
  Receive Date: 20080523
  Receipt Date: 20080515
  Transmission Date: 20081010
  Serious: Yes (Other)
  Sender: FDA-Public Use
  Company Number: JP-PFIZER INC-2008042042

PATIENT
  Age: 62 Year
  Sex: Female

DRUGS (2)
  1. SERTRALINE [Suspect]
     Indication: DEPRESSION
  2. METHYLPHENIDATE HCL [Interacting]
     Indication: DEPRESSION

REACTIONS (2)
  - DRUG INTERACTION [None]
  - SEROTONIN SYNDROME [None]
